FAERS Safety Report 6863243-3 (Version None)
Quarter: 2010Q3

REPORT INFORMATION
  Report Type: 
  Country: None (occurrence: None)
  Receive Date: 20100721
  Receipt Date: 20100715
  Transmission Date: 20110219
  Serious: Yes (Death, Other)
  Sender: FDA-Public Use
  Company Number: PHHY2010US46494

PATIENT
  Sex: Female

DRUGS (2)
  1. FEMARA [Suspect]
     Dosage: UNK
  2. TAMOXIFEN [Suspect]
     Dosage: UNK

REACTIONS (7)
  - BREAST CANCER RECURRENT [None]
  - CARDIAC FAILURE [None]
  - DEATH [None]
  - DYSPNOEA [None]
  - GENERAL PHYSICAL HEALTH DETERIORATION [None]
  - METASTASES TO LYMPH NODES [None]
  - PERICARDIAL EFFUSION [None]
